FAERS Safety Report 5523131-1 (Version None)
Quarter: 2007Q4

REPORT INFORMATION
  Report Type: 
  Country: None (occurrence: None)
  Receive Date: 20071116
  Receipt Date: 20071106
  Transmission Date: 20080405
  Serious: Yes (Other)
  Sender: FDA-Public Use
  Company Number: 2007BI023769

PATIENT
  Age: 55 Year
  Sex: Female

DRUGS (2)
  1. NATALIZUMAB [Suspect]
     Indication: MULTIPLE SCLEROSIS
     Dosage: IV
     Route: 042
  2. NATALIZUMAB [Suspect]
     Indication: MULTIPLE SCLEROSIS
     Dosage: 30 MG; QM; IV
     Route: 042
     Dates: start: 20071001

REACTIONS (5)
  - CHEST DISCOMFORT [None]
  - DYSPHAGIA [None]
  - PRURITUS [None]
  - TONGUE DISORDER [None]
  - URTICARIA [None]
